FAERS Safety Report 8005407-1 (Version None)
Quarter: 2011Q4

REPORT INFORMATION
  Report Type: 
  Country: None (occurrence: None)
  Receive Date: 20111223
  Receipt Date: 20111220
  Transmission Date: 20120403
  Serious: Yes (Hospitalization)
  Sender: FDA-Public Use
  Company Number: FR-ROCHE-1023846

PATIENT
  Sex: Male

DRUGS (2)
  1. ACTEMRA [Suspect]
     Indication: RHEUMATOID ARTHRITIS
     Dosage: DOSE- 20 MG/ML
     Dates: start: 20111006
  2. ACTEMRA [Suspect]
     Dosage: DOSE- 20 MG/ML
     Route: 042
     Dates: start: 20111109, end: 20111109

REACTIONS (5)
  - ABDOMINAL PAIN [None]
  - VOMITING [None]
  - PRURITUS [None]
  - URTICARIA [None]
  - MALAISE [None]
